FAERS Safety Report 24830610 (Version 1)
Quarter: 2025Q1

REPORT INFORMATION
  Report Type: Spontaneous
  Country: CN (occurrence: CN)
  Receive Date: 20250110
  Receipt Date: 20250110
  Transmission Date: 20250408
  Serious: Yes (Other)
  Sender: RANBAXY
  Company Number: CN-SUN PHARMACEUTICAL INDUSTRIES LTD-2024R1-488173

PATIENT
  Age: 49 Year
  Sex: Male

DRUGS (3)
  1. OXALIPLATIN [Suspect]
     Active Substance: OXALIPLATIN
     Indication: Colon cancer
     Route: 065
     Dates: start: 202202, end: 202208
  2. CETUXIMAB [Suspect]
     Active Substance: CETUXIMAB
     Indication: Colon cancer
     Route: 065
     Dates: start: 202202, end: 202208
  3. FLUOROURACIL [Suspect]
     Active Substance: FLUOROURACIL
     Indication: Colon cancer
     Route: 065
     Dates: start: 202202, end: 202208

REACTIONS (6)
  - Bacteroides infection [Unknown]
  - Hepatitis B [Unknown]
  - Hypersplenism [Unknown]
  - Splenic abscess [Unknown]
  - Splenomegaly [Unknown]
  - Thrombocytopenia [Unknown]
